FAERS Safety Report 12904541 (Version 1)
Quarter: 2016Q4

REPORT INFORMATION
  Report Type: Spontaneous
  Country: US (occurrence: US)
  Receive Date: 20161102
  Receipt Date: 20161102
  Transmission Date: 20170207
  Serious: Yes (Other)
  Sender: FDA-Public Use
  Company Number: US-BAYER-2016-205532

PATIENT
  Sex: Female

DRUGS (1)
  1. CIPRO [Suspect]
     Active Substance: CIPROFLOXACIN HYDROCHLORIDE
     Dosage: UNK

REACTIONS (7)
  - Tremor [Not Recovered/Not Resolved]
  - Feeling abnormal [None]
  - Neurological symptom [None]
  - Abasia [None]
  - General physical health deterioration [None]
  - Tinnitus [None]
  - Dyspnoea [None]
